FAERS Safety Report 8552326-8 (Version None)
Quarter: 2012Q3

REPORT INFORMATION
  Report Type: 
  Country: None (occurrence: None)
  Receive Date: 20120731
  Receipt Date: 20120726
  Transmission Date: 20120928
  Serious: Yes (Hospitalization)
  Sender: FDA-Public Use
  Company Number: US-AMGEN-USASP2012003399

PATIENT
  Age: 64 Year
  Sex: Female

DRUGS (14)
  1. PRILOSEC [Concomitant]
     Dosage: UNK
  2. LASIX [Concomitant]
     Dosage: UNK
  3. ENBREL [Suspect]
     Indication: PSORIATIC ARTHROPATHY
     Dosage: 50 MG, QWK
  4. FENTANYL CITRATE [Concomitant]
     Dosage: UNK
  5. VOLTAREN [Concomitant]
     Dosage: UNK
  6. LIPITOR [Concomitant]
     Dosage: UNK
  7. IRON [Concomitant]
     Dosage: UNK
  8. COZAAR [Concomitant]
     Dosage: UNK
  9. ESTRACE [Concomitant]
     Dosage: UNK
  10. DESONIDE [Concomitant]
     Dosage: UNK
  11. VITAMIN C                          /00008001/ [Concomitant]
     Dosage: UNK
  12. TOPROL-XL [Concomitant]
     Dosage: UNK
  13. SYNTHROID [Concomitant]
     Dosage: UNK
  14. CELEXA [Concomitant]
     Dosage: UNK

REACTIONS (2)
  - INTERVERTEBRAL DISC PROTRUSION [None]
  - BACK PAIN [None]
